FAERS Safety Report 8112442-1 (Version None)
Quarter: 2012Q1

REPORT INFORMATION
  Report Type: 
  Country: None (occurrence: None)
  Receive Date: 20120203
  Receipt Date: 20120201
  Transmission Date: 20120608
  Serious: Yes (Death, Other)
  Sender: FDA-Public Use
  Company Number: FR-ROCHE-774595

PATIENT
  Sex: Male
  Weight: 60 kg

DRUGS (4)
  1. CARBOPLATIN [Suspect]
     Indication: METASTATIC BRONCHIAL CARCINOMA
     Dosage: 2ND CYCLE
     Route: 065
  2. AVASTIN [Suspect]
     Indication: METASTATIC BRONCHIAL CARCINOMA
     Route: 042
  3. PEMETREXED DISODIUM [Suspect]
     Indication: METASTATIC BRONCHIAL CARCINOMA
     Route: 065
  4. CISPLATIN [Suspect]
     Indication: METASTATIC BRONCHIAL CARCINOMA
     Route: 065

REACTIONS (2)
  - SUDDEN CARDIAC DEATH [None]
  - FEBRILE BONE MARROW APLASIA [None]
